FAERS Safety Report 25253700 (Version 2)
Quarter: 2025Q4

REPORT INFORMATION
  Report Type: Spontaneous
  Country: JP (occurrence: JP)
  Receive Date: 20250430
  Receipt Date: 20251005
  Transmission Date: 20260117
  Serious: Yes (Other)
  Sender: GENMAB
  Company Number: JP-GENMAB-2025-01139

PATIENT
  Age: 83 Year
  Sex: Male

DRUGS (2)
  1. EPKINLY [Suspect]
     Active Substance: EPCORITAMAB-BYSP
     Indication: Diffuse large B-cell lymphoma
     Dosage: 0.16 MILLIGRAM, SINGLE
     Route: 058
     Dates: start: 20250327, end: 20250327
  2. EPKINLY [Suspect]
     Active Substance: EPCORITAMAB-BYSP
     Dosage: 0.8 MILLIGRAM, SINGLE
     Route: 058
     Dates: start: 20250403, end: 20250403

REACTIONS (8)
  - Immobile [Recovered/Resolved]
  - Metastases to central nervous system [Unknown]
  - Encephalitis viral [Unknown]
  - Depressed level of consciousness [Recovered/Resolved]
  - CSF test abnormal [Unknown]
  - Patient elopement [Recovered/Resolved]
  - Varicella virus test positive [Unknown]
  - Intentional medical device removal by patient [Recovered/Resolved]

NARRATIVE: CASE EVENT DATE: 20250327
